FAERS Safety Report 4544985-1 (Version None)
Quarter: 2005Q1

REPORT INFORMATION
  Report Type: 
  Country: None (occurrence: None)
  Receive Date: 20050103
  Receipt Date: 20050103
  Transmission Date: 20050727
  Serious: Yes (Hospitalization)
  Sender: FDA-Public Use
  Company Number: None

PATIENT
  Sex: Male
  Weight: 92.4 kg

DRUGS (2)
  1. ZOSYN [Suspect]
     Indication: INFECTION
     Dosage: 4.5G IV Q8H
     Route: 042
     Dates: start: 20030619, end: 20030701
  2. VANCOMYCIN [Concomitant]

REACTIONS (1)
  - RENAL FAILURE ACUTE [None]
